FAERS Safety Report 12990371 (Version 3)
Quarter: 2017Q1

REPORT INFORMATION
  Report Type: Spontaneous
  Country: IT (occurrence: IT)
  Receive Date: 20161201
  Receipt Date: 20170209
  Transmission Date: 20170428
  Serious: Yes (Hospitalization, Other)
  Sender: FDA-Public Use
  Company Number: IT-TEVA-714901ISR

PATIENT
  Age: 79 Year
  Sex: Female
  Weight: 66 kg

DRUGS (1)
  1. PACLITAXEL. [Suspect]
     Active Substance: PACLITAXEL
     Indication: CHEMOTHERAPY
     Dosage: 100 MILLIGRAM DAILY;
     Route: 042
     Dates: start: 20161107

REACTIONS (6)
  - Flushing [Recovered/Resolved]
  - Tenderness [Recovered/Resolved]
  - Dyspnoea [Recovered/Resolved]
  - Faecaloma [Recovered/Resolved]
  - Flatulence [Recovered/Resolved]
  - Band sensation [Recovered/Resolved]

NARRATIVE: CASE EVENT DATE: 20161107
